FAERS Safety Report 7594438-1 (Version None)
Quarter: 2011Q3

REPORT INFORMATION
  Report Type: 
  Country: None (occurrence: None)
  Receive Date: 20110707
  Receipt Date: 20110630
  Transmission Date: 20111222
  Serious: Yes (Hospitalization)
  Sender: FDA-Public Use
  Company Number: NL-AMGEN-NLDSP2011026960

PATIENT
  Age: 68 Year
  Sex: Male

DRUGS (2)
  1. ENBREL [Suspect]
     Indication: RHEUMATOID ARTHRITIS
     Dosage: 50 MG, QWK
  2. ENBREL [Suspect]
     Dosage: 50 MG ONCE WEEKLY
     Dates: start: 20110501

REACTIONS (2)
  - PARALYSIS [None]
  - CEREBROVASCULAR ACCIDENT [None]
